FAERS Safety Report 10204648 (Version 1)
Quarter: 2014Q2

REPORT INFORMATION
  Report Type: Spontaneous
  Country: US (occurrence: None)
  Receive Date: 20140527
  Receipt Date: 20140527
  Transmission Date: 20141212
  Serious: Yes (Other)
  Sender: FDA-Public Use
  Company Number: None

PATIENT
  Age: 72 Year
  Sex: Female
  Weight: 63.5 kg

DRUGS (7)
  1. RESTASIS [Suspect]
     Indication: DRY EYE
     Dosage: 2 X DAY, 1 DROP IN EACH EYE
     Dates: start: 20140414, end: 20140417
  2. HYDROCHLOROTHIAZIDE [Concomitant]
  3. DIAZEPAM [Concomitant]
  4. OMEGA 3 [Concomitant]
  5. NIACIN [Concomitant]
  6. VITAMIN C [Concomitant]
  7. B-COMPLEX [Concomitant]

REACTIONS (3)
  - Ocular hyperaemia [None]
  - Eye irritation [None]
  - Eye swelling [None]
